FAERS Safety Report 5799329-4 (Version None)
Quarter: 2008Q3

REPORT INFORMATION
  Report Type: 
  Country: None (occurrence: None)
  Receive Date: 20080702
  Receipt Date: 20080623
  Transmission Date: 20090109
  Serious: Yes (Hospitalization, Other)
  Sender: FDA-Public Use
  Company Number: US-PFIZER INC-2008052599

PATIENT
  Sex: Female
  Weight: 83.1 kg

DRUGS (17)
  1. PREDNISONE 50MG TAB [Suspect]
     Indication: RHEUMATOID ARTHRITIS
  2. ETANERCEPT [Suspect]
     Dosage: DAILY DOSE:50MG-FREQ:WEEKLY
     Route: 058
  3. METHOTREXATE [Concomitant]
     Dates: start: 20040101
  4. SULFASALAZINE [Concomitant]
  5. DICLOFENAC SODIUM [Concomitant]
  6. MONTELUKAST SODIUM [Concomitant]
  7. CETIRIZINE HYDROCHLORIDE [Concomitant]
  8. BUSPIRONE HYDROCHLORIDE [Concomitant]
  9. TRAMADOL HCL [Concomitant]
  10. TIOTROPIUM BROMIDE [Concomitant]
  11. ATENOLOL [Concomitant]
  12. FLUTICASONE PROPIONATE [Concomitant]
  13. ASTELIN [Concomitant]
  14. ESOMEPRAZOLE MAGNESIUM [Concomitant]
  15. EZETIMIBE/SIMVASTATIN [Concomitant]
  16. ASPIRIN [Concomitant]
  17. CYCLOBENZAPRINE HCL [Concomitant]

REACTIONS (9)
  - CERVICAL MYELOPATHY [None]
  - DEPRESSION [None]
  - FATIGUE [None]
  - FOOT FRACTURE [None]
  - NEUTROPHIL COUNT INCREASED [None]
  - PELVIC FRACTURE [None]
  - PLATELET COUNT INCREASED [None]
  - SPINAL COLUMN STENOSIS [None]
  - WHITE BLOOD CELL COUNT INCREASED [None]
